FAERS Safety Report 9262393 (Version 2)
Quarter: 2013Q2

REPORT INFORMATION
  Report Type: Spontaneous
  Country: BR (occurrence: None)
  Receive Date: 20130425
  Receipt Date: 20130626
  Transmission Date: 20140414
  Serious: Yes (Hospitalization)
  Sender: FDA-Public Use
  Company Number: DSJ-2013-08054

PATIENT
  Age: 73 Year
  Sex: Female
  Weight: 71 kg

DRUGS (5)
  1. BENICAR (OLMESARTAN MEDOXOMIL) (TABLET) (OLMESARTAN MEDOXOMIL) [Suspect]
     Indication: HYPERTENSION
     Route: 048
  2. EFFIENT [Suspect]
     Indication: HYPERTENSION
     Route: 048
     Dates: start: 201212, end: 20130314
  3. METOPROLOL (METOPROLOL) (METOPROLOL) [Suspect]
     Indication: HYPERTENSION
     Route: 048
  4. ACETYLSALICYLIC ACID [Suspect]
     Indication: HYPERTENSION
     Route: 048
  5. INSULIN (INSULIN) (-INSULIN) [Concomitant]

REACTIONS (7)
  - Eye haemorrhage [None]
  - Gingival bleeding [None]
  - Ear haemorrhage [None]
  - Haematoma [None]
  - Nodule [None]
  - Petechiae [None]
  - Pruritus [None]
